FAERS Safety Report 5467734-1 (Version None)
Quarter: 2007Q3

REPORT INFORMATION
  Report Type: 
  Country: None (occurrence: None)
  Receive Date: 20070814
  Receipt Date: 20070524
  Transmission Date: 20080115
  Serious: No
  Sender: FDA-Public Use
  Company Number: 200713854US

PATIENT
  Age: 51 Year
  Sex: Female

DRUGS (10)
  1. APIDRA [Suspect]
     Indication: DIABETES MELLITUS
     Dosage: 5 U INJ
  2. FLUTICASONE PROPIONATE [Concomitant]
  3. SALMETEROL XINAFOATE (ADVAIR) [Concomitant]
  4. METHANEX [Concomitant]
  5. OXYCODONE HCL [Concomitant]
  6. MORPHINE [Concomitant]
  7. PENEX II [Concomitant]
  8. KEPPRA [Concomitant]
  9. BUMETANIDE [Concomitant]
  10. LANTUS [Concomitant]

REACTIONS (1)
  - HYPOAESTHESIA [None]
